APPROVED DRUG PRODUCT: PROZAC
Active Ingredient: FLUOXETINE HYDROCHLORIDE
Strength: EQ 20MG BASE
Dosage Form/Route: CAPSULE;ORAL
Application: N018936 | Product #001 | TE Code: AB1
Applicant: ELI LILLY AND CO
Approved: Dec 29, 1987 | RLD: Yes | RS: No | Type: RX